FAERS Safety Report 7941344-6 (Version None)
Quarter: 2011Q4

REPORT INFORMATION
  Report Type: 
  Country: None (occurrence: None)
  Receive Date: 20111128
  Receipt Date: 20111116
  Transmission Date: 20120403
  Serious: Yes (Other)
  Sender: FDA-Public Use
  Company Number: DE-AMGEN-DEUCT2011059331

PATIENT
  Age: 32 Year
  Sex: Male
  Weight: 108 kg

DRUGS (2)
  1. CELECOXIB [Concomitant]
     Indication: SPONDYLITIS
     Dosage: UNK
     Route: 048
     Dates: start: 20101201
  2. ETANERCEPT [Suspect]
     Indication: PRODUCT USED FOR UNKNOWN INDICATION
     Dosage: 25 MG, 2 TIMES/WK
     Dates: start: 20080930

REACTIONS (1)
  - SARCOIDOSIS [None]
